FAERS Safety Report 17994805 (Version 2)
Quarter: 2021Q2

REPORT INFORMATION
  Report Type: Spontaneous
  Country: JP (occurrence: JP)
  Receive Date: 20200708
  Receipt Date: 20210628
  Transmission Date: 20210717
  Serious: Yes (Hospitalization, Other)
  Sender: FDA-Public Use
  Company Number: JP-TEVA-2020-JP-004359J

PATIENT
  Age: 84 Year
  Sex: Male
  Weight: 54 kg

DRUGS (14)
  1. ENALAPRIL MALEATE. [Concomitant]
     Active Substance: ENALAPRIL MALEATE
     Route: 065
  2. CALONAL [Concomitant]
     Active Substance: ACETAMINOPHEN
     Route: 065
     Dates: start: 20200617, end: 20200621
  3. LIVACT [Concomitant]
     Active Substance: AMINO ACIDS, SOURCE UNSPECIFIED
     Route: 065
     Dates: start: 20200617
  4. BAYASPIRIN [Concomitant]
     Active Substance: ASPIRIN
     Route: 065
  5. ROSUZET [Concomitant]
     Active Substance: EZETIMIBE\ROSUVASTATIN
     Route: 065
  6. FENOFIBRATE TABLET 80MG  ^TAKEDA TEVA^ [Suspect]
     Active Substance: FENOFIBRATE
     Indication: HYPERLIPIDAEMIA
     Dosage: 80 MILLIGRAM DAILY;
     Route: 048
     Dates: end: 20200614
  7. BISOPROLOL FUMARATE. [Concomitant]
     Active Substance: BISOPROLOL FUMARATE
     Route: 065
  8. TAKEPRON [Concomitant]
     Active Substance: LANSOPRAZOLE
     Route: 065
  9. TEPRENONE [Concomitant]
     Active Substance: TEPRENONE
     Route: 065
  10. WYSTAL [Concomitant]
     Active Substance: CEFOPERAZONE SODIUM\SULBACTAM SODIUM
     Route: 065
     Dates: start: 20200615, end: 20200625
  11. MAGNESIUM OXIDE. [Concomitant]
     Active Substance: MAGNESIUM OXIDE
     Route: 065
  12. FENTANYL. [Concomitant]
     Active Substance: FENTANYL
     Route: 065
     Dates: start: 20200615, end: 20200615
  13. REMIFENTANIL [Concomitant]
     Active Substance: REMIFENTANIL
     Route: 065
     Dates: start: 20200615, end: 20200615
  14. ACELIO [Concomitant]
     Active Substance: ACETAMINOPHEN
     Route: 065
     Dates: start: 20200615, end: 20200616

REACTIONS (1)
  - Renal impairment [Recovered/Resolved]

NARRATIVE: CASE EVENT DATE: 20200602
